FAERS Safety Report 20619979 (Version 1)
Quarter: 2022Q1

REPORT INFORMATION
  Report Type: Spontaneous
  Country: US (occurrence: None)
  Receive Date: 20220321
  Receipt Date: 20220321
  Transmission Date: 20220424
  Serious: No
  Sender: FDA-Public Use
  Company Number: None

PATIENT
  Age: 30 Year
  Sex: Female

DRUGS (1)
  1. MAKENA [Suspect]
     Active Substance: HYDROXYPROGESTERONE CAPROATE
     Indication: High risk pregnancy
     Dosage: FREQUENCY : WEEKLY;?
     Route: 058
     Dates: start: 20220318

REACTIONS (2)
  - Injection site cellulitis [None]
  - Maternal exposure timing unspecified [None]

NARRATIVE: CASE EVENT DATE: 20220318
